FAERS Safety Report 9934139 (Version 2)
Quarter: 2014Q2

REPORT INFORMATION
  Report Type: Spontaneous
  Country: US (occurrence: US)
  Receive Date: 20140228
  Receipt Date: 20140418
  Transmission Date: 20141212
  Serious: Yes (Other)
  Sender: FDA-Public Use
  Company Number: US-UCBSA-113177

PATIENT
  Age: 66 Year
  Sex: Female
  Weight: 58.96 kg

DRUGS (10)
  1. CIMZIA [Suspect]
     Indication: RHEUMATOID ARTHRITIS
     Dosage: LOADING DOSE
     Dates: end: 201304
  2. CIMZIA [Suspect]
     Indication: RHEUMATOID ARTHRITIS
     Dates: start: 20140114
  3. PREDNISONE [Concomitant]
     Dates: start: 201304
  4. PREDNISONE [Concomitant]
  5. PREDNISONE [Concomitant]
     Dosage: 10MG ONCE MORNING, 5MG EVENING
  6. TYLENOL [Concomitant]
     Dosage: PM
  7. BIOTIN [Concomitant]
     Indication: ALOPECIA
     Route: 048
     Dates: start: 201401
  8. ZINC [Concomitant]
     Indication: ALOPECIA
     Route: 048
     Dates: start: 201401
  9. VITAMIN B6 [Concomitant]
     Indication: PROPHYLAXIS
     Route: 048
  10. ADVAIR [Concomitant]
     Indication: RHEUMATOID ARTHRITIS
     Dosage: INHALER
     Dates: start: 2014

REACTIONS (8)
  - Breast cancer [Recovered/Resolved]
  - Diverticulum [Unknown]
  - Post procedural infection [Unknown]
  - Dyspnoea [Not Recovered/Not Resolved]
  - Rheumatoid arthritis [Unknown]
  - Alopecia [Recovered/Resolved]
  - Weight decreased [Recovered/Resolved]
  - Nervousness [Not Recovered/Not Resolved]
